FAERS Safety Report 6158456-2 (Version None)
Quarter: 2009Q2

REPORT INFORMATION
  Report Type: 
  Country: None (occurrence: None)
  Receive Date: 20090417
  Receipt Date: 20090317
  Transmission Date: 20091009
  Serious: No
  Sender: FDA-Public Use
  Company Number: US-BAYER-200915081NA

PATIENT
  Age: 82 Year
  Sex: Male

DRUGS (7)
  1. LEVITRA [Suspect]
     Indication: ERECTILE DYSFUNCTION
     Dosage: UNIT DOSE: 10 MG
     Route: 048
  2. LEVITRA [Suspect]
     Dosage: UNIT DOSE: 20 MG
     Route: 048
  3. GLIPIZIDE [Concomitant]
  4. AVAPRO [Concomitant]
  5. AVODART [Concomitant]
  6. SIMVASTATIN [Concomitant]
  7. GLUCOSAMINE [Concomitant]

REACTIONS (1)
  - ERECTILE DYSFUNCTION [None]
